FAERS Safety Report 8672634 (Version 2)
Quarter: 2012Q4

REPORT INFORMATION
  Report Type: 
  Country: US (occurrence: US)
  Receive Date: 20120719
  Receipt Date: 20120830
  Transmission Date: 20130627
  Serious: Yes (Death)
  Sender: FDA-Public Use
  Company Number: US-PFIZER INC-2012173371

PATIENT
  Age: 43 Year
  Sex: Male

DRUGS (1)
  1. XALKORI [Suspect]
     Dosage: 250 mg, UNK
     Dates: start: 20120607

REACTIONS (2)
  - Disease progression [Fatal]
  - Neoplasm malignant [Fatal]
